FAERS Safety Report 19203877 (Version 2)
Quarter: 2021Q2

REPORT INFORMATION
  Report Type: Report from Study
  Country: CO (occurrence: CO)
  Receive Date: 20210503
  Receipt Date: 20210531
  Transmission Date: 20210717
  Serious: Yes (Other)
  Sender: FDA-Public Use
  Company Number: CO-AMGEN-COLSL2021064819

PATIENT
  Age: 49 Year
  Sex: Female

DRUGS (2)
  1. VECTIBIX [Suspect]
     Active Substance: PANITUMUMAB
     Indication: COLORECTAL CANCER METASTATIC
     Dosage: 100 MILLIGRAM, Q2WK
     Route: 042
     Dates: start: 20210331
  2. NATURAL TEARS [Concomitant]
     Active Substance: POLYVINYL ALCOHOL\POVIDONE
     Dosage: 1 BOTTLE (APPLY 1 DROP IN EACH EYE EVERY 12 HOURS)
     Dates: start: 20210526

REACTIONS (7)
  - Device related infection [Recovering/Resolving]
  - Tongue blistering [Not Recovered/Not Resolved]
  - Pruritus [Unknown]
  - Condition aggravated [Not Recovered/Not Resolved]
  - Oropharyngeal blistering [Not Recovered/Not Resolved]
  - Device physical property issue [Unknown]
  - Dry mouth [Not Recovered/Not Resolved]

NARRATIVE: CASE EVENT DATE: 2021
